FAERS Safety Report 20110058 (Version 1)
Quarter: 2021Q4

REPORT INFORMATION
  Report Type: Spontaneous
  Country: US (occurrence: US)
  Receive Date: 20211124
  Receipt Date: 20211124
  Transmission Date: 20220303
  Serious: Yes (Hospitalization, Other)
  Sender: FDA-Public Use
  Company Number: US-MALLINCKRODT-T202105073

PATIENT
  Sex: Female
  Weight: 59 kg

DRUGS (1)
  1. H.P. ACTHAR [Suspect]
     Active Substance: CORTICOTROPIN
     Indication: Multiple sclerosis
     Dosage: 1 MILLILITER (80 UNITS), QD FOR 5 DAYS
     Route: 058

REACTIONS (6)
  - Abdominal pain [Unknown]
  - Multiple sclerosis relapse [Unknown]
  - Urinary retention [Unknown]
  - Renal disorder [Not Recovered/Not Resolved]
  - Vomiting [Unknown]
  - Swelling [Not Recovered/Not Resolved]
